FAERS Safety Report 14202360 (Version 1)
Quarter: 2017Q4

REPORT INFORMATION
  Report Type: Spontaneous
  Country: US (occurrence: US)
  Receive Date: 20171117
  Receipt Date: 20171117
  Transmission Date: 20180321
  Serious: Yes (Hospitalization)
  Sender: FDA-Public Use
  Company Number: US-NOVOPROD-572452

PATIENT
  Age: 61 Year
  Sex: Female
  Weight: 98.87 kg

DRUGS (2)
  1. HUMALOG [Concomitant]
     Active Substance: INSULIN LISPRO
     Indication: PRODUCT USED FOR UNKNOWN INDICATION
     Route: 058
  2. NOVOLOG MIX 70/30 [Suspect]
     Active Substance: INSULIN ASPART
     Indication: TYPE 2 DIABETES MELLITUS
     Dosage: 100 U, BID
     Route: 058
     Dates: start: 2010

REACTIONS (2)
  - Dehydration [Recovering/Resolving]
  - Hyperglycaemic unconsciousness [Recovering/Resolving]

NARRATIVE: CASE EVENT DATE: 20170911
